FAERS Safety Report 22088304 (Version 1)
Quarter: 2023Q1

REPORT INFORMATION
  Report Type: Spontaneous
  Country: FR (occurrence: FR)
  Receive Date: 20230313
  Receipt Date: 20230313
  Transmission Date: 20230418
  Serious: Yes (Hospitalization)
  Sender: FDA-Public Use
  Company Number: None

PATIENT
  Age: 2 Year
  Sex: Female
  Weight: 12 kg

DRUGS (1)
  1. AMOXICILLIN [Suspect]
     Active Substance: AMOXICILLIN
     Indication: Tonsillitis
     Dosage: 1 DOSAGE FORM, QD
     Route: 048
     Dates: start: 20071009, end: 20071014

REACTIONS (3)
  - Pruritus [Recovered/Resolved]
  - Erythema multiforme [Recovered/Resolved]
  - Allergy test positive [Recovered/Resolved]

NARRATIVE: CASE EVENT DATE: 20071012
